FAERS Safety Report 24022656 (Version 1)
Quarter: 2024Q2

REPORT INFORMATION
  Report Type: Report from Study
  Country: US (occurrence: US)
  Receive Date: 20240627
  Receipt Date: 20240627
  Transmission Date: 20240716
  Serious: No
  Sender: FDA-Public Use
  Company Number: US-ROCHE-3569554

PATIENT
  Age: 44 Year

DRUGS (3)
  1. ROZLYTREK [Suspect]
     Active Substance: ENTRECTINIB
     Indication: Colon cancer
     Route: 048
  2. ROZLYTREK [Suspect]
     Active Substance: ENTRECTINIB
     Indication: Metastases to liver
  3. ROZLYTREK [Suspect]
     Active Substance: ENTRECTINIB
     Indication: Cholangiocarcinoma

REACTIONS (2)
  - Off label use [Unknown]
  - No adverse event [Unknown]
